FAERS Safety Report 8797038 (Version 3)
Quarter: 2012Q4

REPORT INFORMATION
  Report Type: 
  Country: US (occurrence: US)
  Receive Date: 20120919
  Receipt Date: 20121130
  Transmission Date: 20130627
  Serious: Yes (Death)
  Sender: FDA-Public Use
  Company Number: US-GLAXOSMITHKLINE-A0993874A

PATIENT
  Age: 57 Year
  Sex: Male

DRUGS (1)
  1. FLOLAN [Suspect]
     Indication: PRODUCT USED FOR UNKNOWN INDICATION
     Dosage: 19NGKM Continuous
     Route: 042
     Dates: start: 20080626

REACTIONS (2)
  - Right ventricular failure [Fatal]
  - Depressed level of consciousness [Unknown]
